FAERS Safety Report 8563829-4 (Version None)
Quarter: 2012Q3

REPORT INFORMATION
  Report Type: 
  Country: None (occurrence: None)
  Receive Date: 20120727
  Receipt Date: 20120727
  Transmission Date: 20120928
  Serious: Yes (Hospitalization)
  Sender: FDA-Public Use
  Company Number: None

PATIENT
  Age: 66 Year
  Sex: Female
  Weight: 106.7 kg

DRUGS (9)
  1. SULFADIAZINE [Concomitant]
  2. SYNTHROID [Concomitant]
  3. ULTRAM [Concomitant]
  4. BENTYL [Concomitant]
  5. ALBUTEROL [Concomitant]
  6. CLARITIN [Suspect]
     Dosage: PO  RECENT
     Route: 048
  7. FLONASE [Concomitant]
  8. SEROQUEL [Concomitant]
  9. CYMBALTA [Concomitant]

REACTIONS (7)
  - OESOPHAGEAL ULCER [None]
  - FOREIGN BODY [None]
  - NAUSEA [None]
  - VOMITING [None]
  - CHEST PAIN [None]
  - PAIN [None]
  - WRONG TECHNIQUE IN DRUG USAGE PROCESS [None]
